FAERS Safety Report 7405300-9 (Version None)
Quarter: 2011Q2

REPORT INFORMATION
  Report Type: 
  Country: None (occurrence: None)
  Receive Date: 20110411
  Receipt Date: 20110404
  Transmission Date: 20111010
  Serious: Yes (Death, Congenital Anomaly)
  Sender: FDA-Public Use
  Company Number: BE-TEVA-274866ISR

PATIENT
  Sex: Male
  Weight: 0.28 kg

DRUGS (4)
  1. CYCLOPHOSPHAMIDE [Suspect]
     Route: 015
  2. FLUOROURACIL [Suspect]
     Route: 015
  3. METHOTREXATE [Concomitant]
     Route: 015
  4. EPIRUBICIN [Suspect]
     Route: 015

REACTIONS (7)
  - MICROGNATHIA [None]
  - ABORTION INDUCED [None]
  - CONGENITAL HAND MALFORMATION [None]
  - CLINODACTYLY [None]
  - MATERNAL DRUGS AFFECTING FOETUS [None]
  - CONGENITAL FOOT MALFORMATION [None]
  - SYNDACTYLY [None]
